FAERS Safety Report 5495823-4 (Version None)
Quarter: 2007Q4

REPORT INFORMATION
  Report Type: 
  Country: None (occurrence: None)
  Receive Date: 20071025
  Receipt Date: 20061027
  Transmission Date: 20080405
  Serious: No
  Sender: FDA-Public Use
  Company Number: A0625248A

PATIENT
  Sex: Female

DRUGS (6)
  1. ADVAIR DISKUS 100/50 [Suspect]
  2. ALLERGY SHOTS [Concomitant]
  3. ALBUTEROL [Concomitant]
  4. ALLEGRA [Concomitant]
  5. NOSE DROPS [Concomitant]
  6. COUGH MEDICATION [Concomitant]

REACTIONS (3)
  - DRUG INEFFECTIVE [None]
  - HYPERSENSITIVITY [None]
  - SINUSITIS [None]
